FAERS Safety Report 11341534 (Version 1)
Quarter: 2015Q3

REPORT INFORMATION
  Report Type: Spontaneous
  Country: US (occurrence: US)
  Receive Date: 20150805
  Receipt Date: 20150805
  Transmission Date: 20151125
  Serious: Yes (Other)
  Sender: FDA-Public Use
  Company Number: US-MYLANLABS-2015M1025636

PATIENT

DRUGS (1)
  1. CHATEAL [Suspect]
     Active Substance: ETHINYL ESTRADIOL\LEVONORGESTREL
     Dosage: UNK
     Dates: start: 201504

REACTIONS (2)
  - Cholecystitis [Not Recovered/Not Resolved]
  - Vaginitis bacterial [Not Recovered/Not Resolved]
